FAERS Safety Report 10668468 (Version 2)
Quarter: 2014Q4

REPORT INFORMATION
  Report Type: Report from Study
  Country: US (occurrence: US)
  Receive Date: 20141222
  Receipt Date: 20141223
  Transmission Date: 20150529
  Serious: Yes (Death, Hospitalization)
  Sender: FDA-Public Use
  Company Number: US-009507513-1412USA010025

PATIENT
  Age: 60 Year
  Sex: Female
  Weight: 77.9 kg

DRUGS (6)
  1. IDARUBICIN [Suspect]
     Active Substance: IDARUBICIN
     Indication: ACUTE MYELOID LEUKAEMIA
     Dosage: 12 MG/M2, QD, ON DAYS 4-6
     Route: 042
     Dates: start: 20140912, end: 20140914
  2. CYTARABINE. [Suspect]
     Active Substance: CYTARABINE
     Indication: ACUTE MYELOID LEUKAEMIA
     Dosage: 1500 MG/M2/DAY, ON DAYS 4-7
     Route: 041
     Dates: start: 20140912, end: 20140915
  3. IDARUBICIN [Suspect]
     Active Substance: IDARUBICIN
     Dosage: 8 MG/M2, QD ON DAYS 4-5
     Route: 042
     Dates: start: 20141117, end: 20141118
  4. VORINOSTAT [Suspect]
     Active Substance: VORINOSTAT
     Indication: ACUTE MYELOID LEUKAEMIA
     Dosage: 500 MG, TID, ON DAYS 1-3
     Route: 048
     Dates: start: 20140909, end: 20140911
  5. VORINOSTAT [Suspect]
     Active Substance: VORINOSTAT
     Dosage: 500 MG, TID, ON DAYS 1-3
     Route: 048
     Dates: start: 20141114, end: 20141116
  6. CYTARABINE. [Suspect]
     Active Substance: CYTARABINE
     Dosage: 750 MG/M2, QD ON DAYS 4-6
     Route: 041
     Dates: start: 20141117, end: 20141119

REACTIONS (1)
  - Lung infection [Fatal]

NARRATIVE: CASE EVENT DATE: 20141130
